FAERS Safety Report 22176175 (Version 1)
Quarter: 2023Q2

REPORT INFORMATION
  Report Type: Spontaneous
  Country: US (occurrence: None)
  Receive Date: 20230404
  Receipt Date: 20230404
  Transmission Date: 20230722
  Serious: No
  Sender: FDA-Public Use
  Company Number: None

PATIENT
  Age: 75 Year
  Sex: Male
  Weight: 89.55 kg

DRUGS (8)
  1. HYDROXYUREA [Suspect]
     Active Substance: HYDROXYUREA
     Indication: Essential thrombocythaemia
     Dosage: FREQUENCY : DAILY;?
     Route: 048
     Dates: start: 20210921, end: 20211019
  2. FAMOTIDINE [Concomitant]
     Active Substance: FAMOTIDINE
     Dates: start: 20201201
  3. levothyroxine 75 umg [Concomitant]
     Dates: start: 20190211
  4. PRAVASTATIN [Concomitant]
     Active Substance: PRAVASTATIN
     Dates: start: 20201201
  5. tamsulosin 10mg [Concomitant]
     Dates: start: 20200817
  6. amLODIPine 5 mg-benazepriL 20 mg [Concomitant]
     Dates: start: 20140313, end: 20220120
  7. Unisom 50mg [Concomitant]
     Dates: start: 20200723, end: 20220126
  8. ZOLPIDEM [Concomitant]
     Active Substance: ZOLPIDEM TARTRATE
     Dates: start: 20201012, end: 20220120

REACTIONS (3)
  - Pyrexia [None]
  - Fatigue [None]
  - Therapy cessation [None]

NARRATIVE: CASE EVENT DATE: 20211019
